FAERS Safety Report 7810487-X (Version None)
Quarter: 2011Q4

REPORT INFORMATION
  Report Type: 
  Country: None (occurrence: None)
  Receive Date: 20111012
  Receipt Date: 20111003
  Transmission Date: 20120403
  Serious: Yes (Hospitalization)
  Sender: FDA-Public Use
  Company Number: US-ASTRAZENECA-2011SE18569

PATIENT
  Age: 60 Year
  Sex: Male
  Weight: 88.5 kg

DRUGS (4)
  1. PRILOSEC [Suspect]
     Indication: GASTROOESOPHAGEAL REFLUX DISEASE
     Route: 048
     Dates: start: 20110319, end: 20110301
  2. PRILOSEC [Suspect]
     Indication: ULCER
     Route: 048
     Dates: start: 20110319, end: 20110301
  3. STEROIDS [Suspect]
     Route: 065
  4. PROTON PUMP INHIBITOR MEDICATION [Suspect]
     Route: 065

REACTIONS (7)
  - AUTOIMMUNE HEPATITIS [None]
  - CHROMATURIA [None]
  - HEPATIC ENZYME ABNORMAL [None]
  - DIABETES MELLITUS [None]
  - DRUG HYPERSENSITIVITY [None]
  - AMNESIA [None]
  - WEIGHT DECREASED [None]
